FAERS Safety Report 15600485 (Version 1)
Quarter: 2018Q4

REPORT INFORMATION
  Report Type: Spontaneous
  Country: US (occurrence: US)
  Receive Date: 20181109
  Receipt Date: 20181109
  Transmission Date: 20190205
  Serious: Yes (Hospitalization)
  Sender: FDA-Public Use
  Company Number: US-HIKMA PHARMACEUTICALS USA INC.-US-H14001-18-08202

PATIENT
  Age: 78 Year
  Sex: Male

DRUGS (3)
  1. HEPARIN [Suspect]
     Active Substance: HEPARIN SODIUM
     Indication: PRODUCT USED FOR UNKNOWN INDICATION
     Dosage: UNFRACTIONATED HEPARIN 21 DAYS PRIOR TO ADMISSION ()
     Route: 065
  2. ASPIRIN. [Concomitant]
     Active Substance: ASPIRIN
     Indication: PROPHYLAXIS
     Dosage: UNFRACTIONATED HEPARIN 21 DAYS PRIOR TO ADMISSION ()
     Route: 065
  3. WARFARIN [Concomitant]
     Active Substance: WARFARIN
     Indication: PROPHYLAXIS
     Dosage: UNFRACTIONATED HEPARIN 21 DAYS PRIOR TO ADMISSION ()
     Route: 065

REACTIONS (13)
  - Heparin-induced thrombocytopenia [Unknown]
  - Ischaemic hepatitis [Unknown]
  - Aspiration [Unknown]
  - Haematoma [Unknown]
  - Bundle branch block left [Unknown]
  - Cardiomegaly [Unknown]
  - Cerebral infarction [Unknown]
  - Multiple organ dysfunction syndrome [Unknown]
  - Pulmonary oedema [Unknown]
  - Cardiac failure [Unknown]
  - Septic shock [Unknown]
  - Atrial fibrillation [Unknown]
  - Dysphagia [Unknown]
